FAERS Safety Report 12156631 (Version 3)
Quarter: 2016Q3

REPORT INFORMATION
  Report Type: Spontaneous
  Country: US (occurrence: US)
  Receive Date: 20160307
  Receipt Date: 20160718
  Transmission Date: 20161109
  Serious: Yes (Death)
  Sender: FDA-Public Use
  Company Number: US-CELGENEUS-USA-2015122998

PATIENT
  Age: 62 Year
  Sex: Female

DRUGS (1)
  1. REVLIMID [Suspect]
     Active Substance: LENALIDOMIDE
     Indication: PLASMA CELL MYELOMA
     Dosage: 20 MILLIGRAM
     Route: 048
     Dates: start: 201503, end: 2015

REACTIONS (2)
  - Plasma cell myeloma [Unknown]
  - Cardiac failure congestive [Fatal]

NARRATIVE: CASE EVENT DATE: 2015
